FAERS Safety Report 8515043-6 (Version None)
Quarter: 2012Q3

REPORT INFORMATION
  Report Type: 
  Country: None (occurrence: None)
  Receive Date: 20120717
  Receipt Date: 20120702
  Transmission Date: 20120928
  Serious: Yes (Other)
  Sender: FDA-Public Use
  Company Number: IN-WATSON-2012-11823

PATIENT
  Age: 80 Year
  Sex: Female

DRUGS (1)
  1. TAMOXIFEN CITRATE [Suspect]
     Indication: BREAST CANCER
     Dosage: 20 MG, DAILY
     Route: 048

REACTIONS (4)
  - COLOUR BLINDNESS ACQUIRED [None]
  - DEPOSIT EYE [None]
  - VISUAL ACUITY REDUCED [None]
  - MACULOPATHY [None]
